FAERS Safety Report 5416395-6 (Version None)
Quarter: 2007Q3

REPORT INFORMATION
  Report Type: 
  Country: None (occurrence: None)
  Receive Date: 20070816
  Receipt Date: 20070810
  Transmission Date: 20080115
  Serious: Yes (Hospitalization)
  Sender: FDA-Public Use
  Company Number: PHNU2007DE02808

PATIENT
  Age: 63 Year
  Sex: Female

DRUGS (1)
  1. ZOMETA [Suspect]
     Indication: METASTASES TO BONE
     Dosage: 4 MG, QMO
     Route: 042
     Dates: start: 20060101

REACTIONS (6)
  - CALLUS FORMATION DELAYED [None]
  - FALL [None]
  - MULTIPLE FRACTURES [None]
  - OSTEOSYNTHESIS [None]
  - PELVIC FRACTURE [None]
  - PUBIC RAMI FRACTURE [None]
